FAERS Safety Report 4973954-2 (Version None)
Quarter: 2006Q2

REPORT INFORMATION
  Report Type: 
  Country: None (occurrence: None)
  Receive Date: 20060410
  Receipt Date: 20060322
  Transmission Date: 20061013
  Serious: Yes (Death)
  Sender: FDA-Public Use
  Company Number: US200603005752

PATIENT
  Sex: Male

DRUGS (2)
  1. HUMALOG [Suspect]
     Dosage: 4 U, OTHER;
  2. LANTUS [Concomitant]

REACTIONS (6)
  - ANAEMIA [None]
  - APATHY [None]
  - BEDRIDDEN [None]
  - FEELING OF DESPAIR [None]
  - FLUID INTAKE REDUCED [None]
  - ORAL INTAKE REDUCED [None]
